FAERS Safety Report 4513423-7 (Version None)
Quarter: 2004Q4

REPORT INFORMATION
  Report Type: 
  Country: None (occurrence: None)
  Receive Date: 20041130
  Receipt Date: 20040924
  Transmission Date: 20050328
  Serious: No
  Sender: FDA-Public Use
  Company Number: US-BRISTOL-MYERS SQUIBB COMPANY-12715553

PATIENT
  Age: 76 Year
  Sex: Male
  Weight: 28 kg

DRUGS (3)
  1. ERBITUX [Suspect]
     Indication: COLON CANCER
     Dosage: 1ST DOSE
     Route: 042
     Dates: start: 20040924, end: 20040924
  2. DIPHENHYDRAMINE [Concomitant]
     Indication: PREMEDICATION
     Route: 042
     Dates: start: 20040924, end: 20040924
  3. ATIVAN [Concomitant]
     Indication: PREMEDICATION
     Route: 048
     Dates: start: 20040924, end: 20040924

REACTIONS (1)
  - RASH [None]
